FAERS Safety Report 4881328-8 (Version None)
Quarter: 2005Q4

REPORT INFORMATION
  Report Type: 
  Country: None (occurrence: None)
  Receive Date: 20051212
  Receipt Date: 20050825
  Transmission Date: 20060501
  Serious: Yes (Hospitalization)
  Sender: FDA-Public Use
  Company Number: 2005-01820

PATIENT
  Age: 78 Year
  Sex: Female
  Weight: 72.6 kg

DRUGS (10)
  1. VELCADE [Suspect]
     Indication: MULTIPLE MYELOMA
     Dates: start: 20050701
  2. LISINOPRIL [Concomitant]
  3. TOPROL-XL [Concomitant]
  4. RITALIN [Concomitant]
  5. LEXAPRO [Concomitant]
  6. NEURONTIN [Concomitant]
  7. FERGON (FERROUS GLUCONATE) [Concomitant]
  8. INSULIN [Concomitant]
  9. PREMARIN [Concomitant]
  10. LASIX [Concomitant]

REACTIONS (2)
  - DEHYDRATION [None]
  - DIARRHOEA [None]
